FAERS Safety Report 11520449 (Version 1)
Quarter: 2015Q3

REPORT INFORMATION
  Report Type: Report from Study
  Country: DE (occurrence: DE)
  Receive Date: 20150918
  Receipt Date: 20150918
  Transmission Date: 20151125
  Serious: Yes (Death, Other)
  Sender: FDA-Public Use
  Company Number: DE-CELGENE-062-21660-14014116

PATIENT

DRUGS (1)
  1. ABRAXANE [Suspect]
     Active Substance: PACLITAXEL
     Indication: BREAST CANCER METASTATIC
     Route: 041

REACTIONS (7)
  - Infection [Unknown]
  - Death [Fatal]
  - Adverse event [Unknown]
  - Polyneuropathy [Unknown]
  - Nausea [Unknown]
  - Dyspnoea [Unknown]
  - Neutropenia [Unknown]
